FAERS Safety Report 9129477 (Version 1)
Quarter: 2013Q1

REPORT INFORMATION
  Report Type: Spontaneous
  Country: IT (occurrence: IT)
  Receive Date: 20130125
  Receipt Date: 20130125
  Transmission Date: 20140127
  Serious: Yes (Other)
  Sender: FDA-Public Use
  Company Number: IT-ROCHE-1180915

PATIENT
  Age: 40 Year
  Sex: Female

DRUGS (3)
  1. RIVOTRIL [Suspect]
     Indication: INTENTIONAL SELF-INJURY
     Dosage: 2,5 MG/ML ORAL DROPS
     Route: 048
     Dates: start: 20121123, end: 20121123
  2. ENTACT [Suspect]
     Indication: INTENTIONAL SELF-INJURY
     Dosage: 10 MG
     Route: 048
     Dates: start: 20121123, end: 20121123
  3. EFFEXOR [Suspect]
     Indication: INTENTIONAL SELF-INJURY
     Dosage: 75 MG
     Route: 048
     Dates: start: 20121123, end: 20121123

REACTIONS (1)
  - Intentional self-injury [Recovering/Resolving]
